FAERS Safety Report 6372194-2 (Version None)
Quarter: 2009Q3

REPORT INFORMATION
  Report Type: 
  Country: None (occurrence: None)
  Receive Date: 20090924
  Receipt Date: 20090916
  Transmission Date: 20100115
  Serious: Yes (Other)
  Sender: FDA-Public Use
  Company Number: US-ASTRAZENECA-2008UW00310

PATIENT
  Age: 20456 Day
  Sex: Female
  Weight: 97 kg

DRUGS (7)
  1. SEROQUEL [Suspect]
     Indication: SLEEP DISORDER
     Route: 048
     Dates: start: 20001201, end: 20010101
  2. SEROQUEL [Suspect]
     Dosage: 200/600 MG
     Route: 048
     Dates: start: 20030601, end: 20041001
  3. RISPERDAL [Suspect]
  4. ZYPREXA [Suspect]
     Dates: start: 20001001
  5. VICODIN [Concomitant]
     Dates: start: 20070510
  6. AVANDIA [Concomitant]
     Route: 048
     Dates: start: 20030804
  7. GLUCOPHAGE [Concomitant]
     Route: 048
     Dates: start: 20030804

REACTIONS (3)
  - DIABETES MELLITUS [None]
  - DIABETIC KETOACIDOSIS [None]
  - TYPE 2 DIABETES MELLITUS [None]
